FAERS Safety Report 5392127-5 (Version None)
Quarter: 2007Q3

REPORT INFORMATION
  Report Type: 
  Country: None (occurrence: None)
  Receive Date: 20070718
  Receipt Date: 20070718
  Transmission Date: 20080115
  Serious: Yes (Other)
  Sender: FDA-Public Use
  Company Number: None

PATIENT
  Age: 84 Year
  Sex: Male
  Weight: 74 kg

DRUGS (1)
  1. FONDAPARINUX   7.5     GLAXO SMITH KLINE [Suspect]
     Indication: DEEP VEIN THROMBOSIS
     Dosage: 7.5 MG  DAILY  SQ
     Route: 058
     Dates: start: 20070621, end: 20070712

REACTIONS (5)
  - BLOOD CREATININE INCREASED [None]
  - CREATININE RENAL CLEARANCE DECREASED [None]
  - ECCHYMOSIS [None]
  - PAIN [None]
  - PURPURA [None]
